FAERS Safety Report 8175952 (Version 5)
Quarter: 2013Q1

REPORT INFORMATION
  Report Type: Report from Study
  Country: CA (occurrence: CA)
  Receive Date: 20111011
  Receipt Date: 20130130
  Transmission Date: 20140127
  Serious: Yes (Other)
  Sender: FDA-Public Use
  Company Number: PHHO2011CA16883

PATIENT
  Age: 49 Year
  Sex: Female
  Weight: 72.3 kg

DRUGS (2)
  1. FTY [Suspect]
     Indication: MULTIPLE SCLEROSIS
     Dosage: 0.5 MG, QD
     Route: 048
     Dates: start: 20110428, end: 20110929
  2. FTY [Suspect]
     Dosage: 0.5 MG, QD
     Route: 048
     Dates: start: 20111004

REACTIONS (1)
  - Bowen^s disease [Recovered/Resolved]
